FAERS Safety Report 6659492-X (Version None)
Quarter: 2010Q1

REPORT INFORMATION
  Report Type: 
  Country: None (occurrence: None)
  Receive Date: 20100326
  Receipt Date: 20100310
  Transmission Date: 20100710
  Serious: Yes (Death, Life-Threatening)
  Sender: FDA-Public Use
  Company Number: 2010030766

PATIENT
  Age: 43 Year
  Sex: Male

DRUGS (27)
  1. FRAGMIN [Suspect]
     Dosage: 0.2 ML, 1X/DAY, SUBCUTANEOUS
     Route: 058
     Dates: start: 20090221, end: 20090306
  2. DORMICUM FOR INJECTION (MIDAZOLAM HYDROCHLORIDE) SOLUTION FOR INJECTIO [Suspect]
     Indication: DELIRIUM
     Dosage: 5 MG, UNK, INTRAVENOUS
     Route: 042
     Dates: start: 20090220, end: 20090220
  3. ASPISOL (ACETYLSALICYLATE LYSINE) SOLUTION FOR INJECTION [Suspect]
     Dosage: 250 MG, UNK, INTRAVENOUS
     Route: 042
     Dates: start: 20090221, end: 20090225
  4. ZOVIRAX (ACICLOVIR) SOLUTION FOR INJECTION [Suspect]
     Dosage: 750 MG, 3X/DAY, INTRAVENOUS
     Route: 042
     Dates: start: 20090221, end: 20090225
  5. FORTUM (CEFTAZIDIME PENTAHYDRATE) SOLUTION FOR INJECTION [Suspect]
     Indication: SEPSIS
     Dosage: 2 G, 3X/DAY, INTRAVENOUS
     Route: 042
     Dates: start: 20090221, end: 20090226
  6. VITAMIN B1 (THIAMINE HYDROCHLORIDE) SOLUTION FOR INJECTION [Suspect]
     Dosage: 750 MG, 3X/DAY, INTRAVENOUS
     Route: 042
     Dates: start: 20090221, end: 20090225
  7. HALDOL (HALOPERIDOL) SOLUTION FOR INJECTION [Suspect]
     Indication: HALLUCINATION
     Dosage: 5 MG, 3X/DAY, INTRAVENOUS 5 MG, 2X/DAY 5 MG
     Route: 042
     Dates: start: 20090221, end: 20090222
  8. HALDOL (HALOPERIDOL) SOLUTION FOR INJECTION [Suspect]
     Indication: HALLUCINATION
     Dosage: 5 MG, 3X/DAY, INTRAVENOUS 5 MG, 2X/DAY 5 MG
     Route: 042
     Dates: start: 20090224, end: 20090302
  9. HALDOL (HALOPERIDOL) SOLUTION FOR INJECTION [Suspect]
     Indication: HALLUCINATION
     Dosage: 5 MG, 3X/DAY, ORAL
     Route: 048
     Dates: start: 20090302, end: 20090306
  10. ACETAMINOPHEN [Suspect]
     Indication: PYREXIA
     Dosage: 5 MG, 3X/DAY, INTRAVENOUS
     Route: 042
     Dates: start: 20090221, end: 20090306
  11. AMINOVEN (AMINO ACIDS NOS) SOLUTION FOR INFUSION [Suspect]
     Indication: SUPPLEMENTATION THERAPY
     Dosage: ORAL
     Route: 048
     Dates: start: 20090221, end: 20090306
  12. INSUMAN RAPID (INSULIN HUMAN) SOLUTION FOR INJECTION [Suspect]
     Indication: HYPERGLYCAEMIA
     Dosage: INTRAVENOUS
     Route: 042
     Dates: start: 20090221, end: 20090308
  13. VANCOMYCIN [Suspect]
     Indication: EAR INFECTION
     Dosage: 1 G, 2X/DAY, INTRAVENOUS
     Route: 042
     Dates: start: 20090221, end: 20090301
  14. TAVOR (LORAZEPAM) SOLUTION FOR INJECTION [Suspect]
     Indication: HALLUCINATION
     Dosage: 1 MG, 3X/DAY, INTRAVENOUS ; 0.5 MG, 3X/DAY
     Route: 042
     Dates: start: 20090221
  15. NEXIUM (ESOMEPRAZOLE) SOLUTION FOR INJECTION [Suspect]
     Indication: PROPHYLAXIS AGAINST GASTROINTESTINAL ULCER
     Dosage: 40 MG, 1X/DAY, INTRAVENOUS ; 20 MG 1X/DAY, INTRAVENOUS
     Route: 042
     Dates: start: 20090222
  16. LAVASEPT (EPIRIZOLE) [Suspect]
     Indication: ACNE
     Dosage: TOPICAL
     Route: 061
     Dates: start: 20090223, end: 20090225
  17. ADVANTAN (METHYLPREDNISOLONE ACEPONATE) CREAM [Suspect]
     Indication: ACNE
     Dosage: TOPICAL
     Route: 061
     Dates: start: 20090225, end: 20090227
  18. LEDERFOLAT (CALCIUM FOLINATE) [Suspect]
     Indication: SUPPLEMENTATION THERAPY
     Dosage: 15 MG, 1X/DAY, ORAL
     Route: 048
     Dates: start: 20090225, end: 20090306
  19. SULFADIAZINE (SULFADIAZINE) SOLUTION FOR INJECTION [Suspect]
     Indication: TOXOPLASMOSIS
     Dosage: 1.5 G, 3X/DAY, INTRAVENOUS
     Route: 042
     Dates: start: 20090225, end: 20090306
  20. NIZORAL (KETOCONAZOLE) CREAM [Suspect]
     Indication: ACNE
     Dosage: TOPICAL
     Route: 061
     Dates: start: 20090225, end: 20090306
  21. DARAPRIM [Suspect]
     Indication: TOXOPLASMOSIS
     Dosage: 25 MG, 2X/DAY, ORAL
     Route: 048
     Dates: start: 20090225
  22. TAZOBAC (PIPERACILLIN SODIUM, TAZOBACTAM SODIUM) [Suspect]
     Indication: SEPSIS
     Dosage: 4.5 MG, 3X/DAY, INTRAVENOUS
     Route: 042
     Dates: start: 20090226, end: 20090306
  23. CILOXAN (CIPROFLOXACIN HYDROCHLORIDE) EAR DROPS [Suspect]
     Indication: EAR INFECTION
     Dosage: AURICULAR
     Route: 001
     Dates: start: 20090227, end: 20090306
  24. LAVASEPT (EPIRIZOLE) EAR WASH [Suspect]
     Indication: EAR INFECTION
     Dosage: AURICULAR
     Route: 001
     Dates: start: 20090227, end: 20090306
  25. KONAKION [Suspect]
     Indication: SUPPLEMENTATION THERAPY
     Dosage: 1 DF, INTRAVENOUS
     Route: 042
     Dates: start: 20090228, end: 20090305
  26. BETABION (THIAMINE HYDROCHLORIDE) [Suspect]
     Indication: SUPPLEMENTATION THERAPY
     Dosage: 100 MG, ORAL
     Route: 048
     Dates: start: 20090228, end: 20090306
  27. TAVANIC (LEVOFLOXACIN) SOLUTION FOR INJECTION [Suspect]
     Indication: SEPSIS
     Dosage: 500 MG, 2X/DAY, INTRAVENOUS
     Route: 042
     Dates: start: 20090301, end: 20090306

REACTIONS (9)
  - ACNE [None]
  - DYSPNOEA [None]
  - EAR INFECTION [None]
  - HALLUCINATION [None]
  - MASTOIDITIS [None]
  - SEPSIS [None]
  - SEPTIC SHOCK [None]
  - STEVENS-JOHNSON SYNDROME [None]
  - TOXIC EPIDERMAL NECROLYSIS [None]
